FAERS Safety Report 9665639 (Version 1)
Quarter: 2013Q4

REPORT INFORMATION
  Report Type: Spontaneous
  Country: US (occurrence: None)
  Receive Date: 20131101
  Receipt Date: 20131101
  Transmission Date: 20140711
  Serious: No
  Sender: FDA-Public Use
  Company Number: None

PATIENT
  Age: 24 Year
  Sex: Female
  Weight: 117.94 kg

DRUGS (1)
  1. TRIAMTERENE/HCTZ [Suspect]
     Dosage: TAKEN BY MOUTH
     Dates: start: 20130616, end: 20131016

REACTIONS (8)
  - Dizziness [None]
  - Nausea [None]
  - Vomiting [None]
  - Loss of consciousness [None]
  - Pollakiuria [None]
  - Blood pressure decreased [None]
  - Product substitution issue [None]
  - Blood creatinine increased [None]
